FAERS Safety Report 5684862-6 (Version None)
Quarter: 2008Q1

REPORT INFORMATION
  Report Type: 
  Country: None (occurrence: None)
  Receive Date: 20080328
  Receipt Date: 20071031
  Transmission Date: 20080703
  Serious: Yes (Other)
  Sender: FDA-Public Use
  Company Number: US-BRISTOL-MYERS SQUIBB COMPANY-13971411

PATIENT
  Age: 78 Year
  Sex: Male

DRUGS (1)
  1. ERBITUX [Suspect]
     Indication: RECTAL CANCER

REACTIONS (2)
  - DYSPNOEA [None]
  - WHEEZING [None]
